FAERS Safety Report 8894823 (Version 1)
Quarter: 2012Q4

REPORT INFORMATION
  Report Type: 
  Country: US (occurrence: US)
  Receive Date: 20121108
  Receipt Date: 20121108
  Transmission Date: 20130627
  Serious: Yes (Other)
  Sender: FDA-Public Use
  Company Number: US-PFIZER INC-2012278895

PATIENT
  Sex: Female

DRUGS (1)
  1. LYRICA [Suspect]
     Indication: FIBROMYALGIA
     Dosage: 75 mg, 2x/day
     Route: 048
     Dates: start: 20121025

REACTIONS (5)
  - Sleep apnoea syndrome [Unknown]
  - Memory impairment [Unknown]
  - Somnolence [Unknown]
  - Pain [Unknown]
  - Malaise [Unknown]
